FAERS Safety Report 24318843 (Version 2)
Quarter: 2024Q3

REPORT INFORMATION
  Report Type: Spontaneous
  Country: JP (occurrence: JP)
  Receive Date: 20240913
  Receipt Date: 20240927
  Transmission Date: 20241017
  Serious: No
  Sender: BOEHRINGER INGELHEIM
  Company Number: JP-NBI-2024-BI-050944

PATIENT
  Age: 7 Decade
  Sex: Male

DRUGS (2)
  1. JARDIANCE [Suspect]
     Active Substance: EMPAGLIFLOZIN
     Indication: Diabetes mellitus
     Dosage: START DATE OF ADMINISTRATION: END OF AUGUST
     Route: 048
     Dates: start: 202408, end: 20240910
  2. RYBELSUS [Suspect]
     Active Substance: SEMAGLUTIDE
     Indication: Diabetes mellitus
     Route: 048

REACTIONS (2)
  - Weight decreased [Unknown]
  - Decreased appetite [Unknown]
